FAERS Safety Report 7101361-5 (Version None)
Quarter: 2010Q4

REPORT INFORMATION
  Report Type: 
  Country: None (occurrence: None)
  Receive Date: 20101115
  Receipt Date: 20091218
  Transmission Date: 20110411
  Serious: No
  Sender: FDA-Public Use
  Company Number: US-PFIZER INC-2009312471

PATIENT
  Sex: Male
  Weight: 85.3 kg

DRUGS (1)
  1. MEDROL [Suspect]
     Indication: COSTOCHONDRITIS
     Dosage: 4 MG, 1X/DAY
     Route: 048
     Dates: start: 20091214

REACTIONS (3)
  - ABDOMINAL DISCOMFORT [None]
  - AGITATION [None]
  - DYSGEUSIA [None]
